FAERS Safety Report 9519831 (Version 3)
Quarter: 2013Q4

REPORT INFORMATION
  Report Type: Spontaneous
  Country: JP (occurrence: JP)
  Receive Date: 20130912
  Receipt Date: 20131030
  Transmission Date: 20140711
  Serious: Yes (Death)
  Sender: FDA-Public Use
  Company Number: JP-ASTELLAS-2013US009330

PATIENT
  Age: 71 Year
  Sex: Male

DRUGS (7)
  1. TARCEVA [Suspect]
     Indication: LUNG ADENOCARCINOMA
     Dosage: 150 MG, UID/QD
     Route: 048
     Dates: start: 20130702, end: 20130707
  2. RABEPRO [Suspect]
     Indication: GASTRITIS
     Dosage: 10 MG, UID/QD
     Route: 048
     Dates: start: 20130701, end: 20130707
  3. LIVALO [Suspect]
     Indication: DYSLIPIDAEMIA
     Dosage: 2 MG, UID/QD
     Route: 048
  4. DIOVAN [Suspect]
     Indication: HYPERTENSION
     Dosage: 80 MG, UID/QD
     Route: 048
  5. FLUITRAN [Suspect]
     Indication: HYPERTENSION
     Dosage: 1 MG, UID/QD
     Route: 048
  6. DECADRON /00016001/ [Suspect]
     Indication: LUNG ADENOCARCINOMA
     Dosage: 3.3 MG, BID
     Route: 042
     Dates: start: 20130620, end: 20130706
  7. MEROPENEM [Suspect]
     Indication: PNEUMONIA
     Dosage: 0.5 MG, TID
     Route: 041
     Dates: start: 20130701, end: 20130707

REACTIONS (2)
  - Interstitial lung disease [Fatal]
  - Aspergillus infection [Fatal]
